FAERS Safety Report 4664242-2 (Version None)
Quarter: 2005Q2

REPORT INFORMATION
  Report Type: 
  Country: None (occurrence: None)
  Receive Date: 20050516
  Receipt Date: 20050505
  Transmission Date: 20051028
  Serious: Yes (Other)
  Sender: FDA-Public Use
  Company Number: 2005-05-0171

PATIENT
  Age: 3 Year
  Sex: Female

DRUGS (2)
  1. INTRON A [Suspect]
     Indication: EYE DISORDER
     Dosage: 3 MIU/M^2 QD SUBCUTANEOUS
     Route: 058
  2. INTRON A [Suspect]
     Indication: HAEMANGIOMA
     Dosage: 3 MIU/M^2 QD SUBCUTANEOUS
     Route: 058

REACTIONS (2)
  - DIPLEGIA [None]
  - SPASTIC PARALYSIS [None]
